FAERS Safety Report 21913109 (Version 1)
Quarter: 2023Q1

REPORT INFORMATION
  Report Type: Spontaneous
  Country: US (occurrence: US)
  Receive Date: 20230125
  Receipt Date: 20230125
  Transmission Date: 20230418
  Serious: No
  Sender: FDA-Public Use
  Company Number: US-ALLERGAN-2207012US

PATIENT
  Sex: Female

DRUGS (2)
  1. BOTOX COSMETIC [Suspect]
     Active Substance: ONABOTULINUMTOXINA
     Indication: Product used for unknown indication
     Dosage: UNK, SINGLE
  2. BOTOX COSMETIC [Suspect]
     Active Substance: ONABOTULINUMTOXINA
     Dosage: UNK, SINGLE
     Dates: start: 20220224, end: 20220224

REACTIONS (1)
  - Rash [Recovered/Resolved]
